FAERS Safety Report 19477277 (Version 1)
Quarter: 2021Q2

REPORT INFORMATION
  Report Type: Spontaneous
  Country: GB (occurrence: GB)
  Receive Date: 20210630
  Receipt Date: 20210630
  Transmission Date: 20210717
  Serious: Yes (Life-Threatening, Disabling)
  Sender: FDA-Public Use
  Company Number: GB-TORRENT-00025934

PATIENT
  Age: 27 Year
  Sex: Male
  Weight: 88 kg

DRUGS (6)
  1. ARIPIPRAZOLE. [Suspect]
     Active Substance: ARIPIPRAZOLE
     Indication: SCHIZOPHRENIA
     Dosage: UNKNOWN
     Dates: start: 20201008, end: 20210302
  2. ZUCLOPENTHIXOL DECANOATE [Suspect]
     Active Substance: ZUCLOPENTHIXOL DECANOATE
     Indication: SCHIZOPHRENIA
     Dosage: UNKNOWN
     Dates: start: 20200112, end: 202006
  3. COCODAMOL [Concomitant]
     Active Substance: ACETAMINOPHEN\CODEINE PHOSPHATE
     Indication: LOWER LIMB FRACTURE
     Dosage: UNKNOWN
     Dates: start: 202004, end: 202010
  4. HALOPERIDOL. [Suspect]
     Active Substance: HALOPERIDOL
     Indication: SCHIZOPHRENIA
     Dosage: UNKNOWN
     Dates: start: 20200112, end: 202006
  5. RISPERIDONE. [Suspect]
     Active Substance: RISPERIDONE
     Indication: SCHIZOPHRENIA
     Dosage: UNKNOWN
     Dates: start: 20201008, end: 20210302
  6. OLANZAPINE. [Suspect]
     Active Substance: OLANZAPINE
     Indication: SCHIZOPHRENIA
     Dosage: UNKNOWN
     Dates: start: 201904, end: 201905

REACTIONS (13)
  - Vomiting [Recovering/Resolving]
  - Syncope [Recovering/Resolving]
  - Extrapyramidal disorder [Recovering/Resolving]
  - Tardive dyskinesia [Recovering/Resolving]
  - Disturbance in attention [Recovering/Resolving]
  - Nightmare [Not Recovered/Not Resolved]
  - Parkinsonian gait [Recovering/Resolving]
  - Amnesia [Recovering/Resolving]
  - Weight increased [Recovering/Resolving]
  - Confusional state [Recovering/Resolving]
  - Sexual dysfunction [Recovering/Resolving]
  - Pyrexia [Recovering/Resolving]
  - Coordination abnormal [Recovering/Resolving]

NARRATIVE: CASE EVENT DATE: 20200112
